FAERS Safety Report 9399796 (Version 3)
Quarter: 2014Q2

REPORT INFORMATION
  Report Type: Spontaneous
  Country: AR (occurrence: AR)
  Receive Date: 20130715
  Receipt Date: 20140409
  Transmission Date: 20141212
  Serious: Yes (Other)
  Sender: FDA-Public Use
  Company Number: PHHY2013AR073469

PATIENT
  Age: 69 Year
  Sex: Female

DRUGS (2)
  1. SANDOSTATIN LAR [Suspect]
     Indication: NEUROENDOCRINE TUMOUR
     Dosage: 20 MG, UNK
     Dates: start: 200905
  2. SANDOSTATIN LAR [Suspect]
     Dosage: 40 MG, 2 MONTHLY
     Route: 030
     Dates: start: 201306

REACTIONS (2)
  - Abdominal neoplasm [Recovering/Resolving]
  - Syringe issue [Unknown]
